FAERS Safety Report 9160426 (Version 1)
Quarter: 2013Q1

REPORT INFORMATION
  Report Type: Spontaneous
  Country: PH (occurrence: PH)
  Receive Date: 20130313
  Receipt Date: 20130313
  Transmission Date: 20140127
  Serious: Yes (Other)
  Sender: FDA-Public Use
  Company Number: PH-ROCHE-1201310

PATIENT
  Age: 43 Year
  Sex: Female

DRUGS (7)
  1. BONVIVA [Suspect]
     Indication: PRODUCT USED FOR UNKNOWN INDICATION
     Route: 065
     Dates: start: 20121210
  2. BONVIVA [Suspect]
     Route: 048
     Dates: start: 20130110, end: 20130210
  3. PREDNISONE [Concomitant]
     Route: 065
     Dates: start: 201102
  4. MESTINON [Concomitant]
     Route: 065
     Dates: start: 201102
  5. VITAMIN B 1-6-12 [Concomitant]
     Route: 065
     Dates: start: 201102
  6. CALCIUM CARBONATE [Concomitant]
  7. VITAMIN C [Concomitant]

REACTIONS (2)
  - Oedema [Recovered/Resolved]
  - Back pain [Recovered/Resolved]
